FAERS Safety Report 6272342-9 (Version None)
Quarter: 2009Q3

REPORT INFORMATION
  Report Type: 
  Country: None (occurrence: None)
  Receive Date: 20090717
  Receipt Date: 20090706
  Transmission Date: 20100115
  Serious: Yes (Death, Hospitalization)
  Sender: FDA-Public Use
  Company Number: ES-PFIZER INC-2009236448

PATIENT
  Age: 63 Year

DRUGS (3)
  1. DOXYCYCLINE HYCLATE [Suspect]
     Dosage: 100 MG, 2X/DAY
  2. LEVOFLOXACIN [Concomitant]
     Dosage: 500 MG, 2X/DAY
  3. NAPROXEN AND NAPROXEN SODIUM [Concomitant]
     Dosage: 500 MG, 3X/DAY

REACTIONS (1)
  - HEPATITIS ACUTE [None]
